FAERS Safety Report 6684882-9 (Version None)
Quarter: 2010Q2

REPORT INFORMATION
  Report Type: 
  Country: None (occurrence: None)
  Receive Date: 20100416
  Receipt Date: 20100412
  Transmission Date: 20101027
  Serious: Yes (Other)
  Sender: FDA-Public Use
  Company Number: US-JNJCH-2010008851

PATIENT
  Age: 2 Year
  Sex: Male
  Weight: 16.3 kg

DRUGS (2)
  1. CHILDREN'S ZYRTEC ALLERGY [Suspect]
     Indication: DRUG USE FOR UNKNOWN INDICATION
     Dosage: TEXT:UNSPECIFIED
     Route: 048
     Dates: start: 20100101, end: 20100411
  2. NEXIUM [Concomitant]
     Indication: DRUG USE FOR UNKNOWN INDICATION
     Dosage: TEXT:UNKNOWN
     Route: 065

REACTIONS (5)
  - AGGRESSION [None]
  - DIARRHOEA HAEMORRHAGIC [None]
  - MUCOUS STOOLS [None]
  - PRODUCT QUALITY ISSUE [None]
  - SOMNOLENCE [None]
